FAERS Safety Report 9797116 (Version 1)
Quarter: 2014Q1

REPORT INFORMATION
  Report Type: Spontaneous
  Country: US (occurrence: None)
  Receive Date: 20140102
  Receipt Date: 20140102
  Transmission Date: 20141002
  Serious: No
  Sender: FDA-Public Use
  Company Number: None

PATIENT
  Age: 73 Year
  Sex: Female
  Weight: 90.27 kg

DRUGS (4)
  1. BACITRACIN [Suspect]
     Indication: BLEPHARITIS
     Dosage: APPLIED TO A SURFACE, USUALLY THE SKIN
     Dates: start: 20131223, end: 20131225
  2. VIT C [Concomitant]
  3. VIT D [Concomitant]
  4. D3 [Concomitant]

REACTIONS (2)
  - Eye swelling [None]
  - Dermatitis contact [None]
